FAERS Safety Report 18312917 (Version 1)
Quarter: 2020Q3

REPORT INFORMATION
  Report Type: Spontaneous
  Country: US (occurrence: US)
  Receive Date: 20200925
  Receipt Date: 20200925
  Transmission Date: 20201103
  Serious: Yes (Life-Threatening, Disabling)
  Sender: FDA-Public Use
  Company Number: None

PATIENT
  Age: 58 Year
  Sex: Female
  Weight: 50.85 kg

DRUGS (4)
  1. BIOTIN [Concomitant]
     Active Substance: BIOTIN
  2. MULTIVITAMIN [Concomitant]
     Active Substance: VITAMINS
  3. ALPRAZOLAM. [Suspect]
     Active Substance: ALPRAZOLAM
     Indication: INSOMNIA
     Dosage: ?          QUANTITY:1 TABLET(S);?
     Route: 048
     Dates: start: 20120111, end: 20180204
  4. MAGNESIUM [Concomitant]
     Active Substance: MAGNESIUM

REACTIONS (7)
  - Atrial fibrillation [None]
  - General symptom [None]
  - Suicide attempt [None]
  - Agoraphobia [None]
  - Suicidal ideation [None]
  - Hypothyroidism [None]
  - Drug withdrawal syndrome [None]

NARRATIVE: CASE EVENT DATE: 20170613
